FAERS Safety Report 19186327 (Version 5)
Quarter: 2022Q3

REPORT INFORMATION
  Report Type: Report from Study
  Country: BR (occurrence: BR)
  Receive Date: 20210427
  Receipt Date: 20220803
  Transmission Date: 20221027
  Serious: Yes (Other)
  Sender: FDA-Public Use
  Company Number: NVSC2021BR088442

PATIENT
  Age: 45 Year
  Sex: Male

DRUGS (4)
  1. COSENTYX [Suspect]
     Active Substance: SECUKINUMAB
     Indication: Psoriatic arthropathy
     Dosage: 300 MG (2 PER APPLICATION)
     Route: 065
     Dates: start: 20201123
  2. COSENTYX [Suspect]
     Active Substance: SECUKINUMAB
     Indication: Psoriasis
     Dosage: 300 MG
     Route: 065
  3. ADALIMUMAB [Suspect]
     Active Substance: ADALIMUMAB
     Indication: Product used for unknown indication
     Dosage: UNK
     Route: 065
  4. AZITHROMYCIN [Suspect]
     Active Substance: AZITHROMYCIN
     Indication: COVID-19
     Dosage: 1 DF, QD (STARTED APPROXIMATELY 15 DAYS AGO)
     Route: 065

REACTIONS (17)
  - Immunodeficiency [Unknown]
  - Psoriatic arthropathy [Unknown]
  - Scar [Unknown]
  - Asthenia [Unknown]
  - Hand fracture [Unknown]
  - Disease complication [Not Recovered/Not Resolved]
  - COVID-19 [Not Recovered/Not Resolved]
  - Fatigue [Unknown]
  - Pain [Unknown]
  - Back pain [Unknown]
  - Pulmonary pain [Unknown]
  - Pain in extremity [Unknown]
  - Bone pain [Unknown]
  - Psoriasis [Unknown]
  - Drug ineffective [Unknown]
  - Product use in unapproved indication [Unknown]
  - Product availability issue [Unknown]

NARRATIVE: CASE EVENT DATE: 20201101
